FAERS Safety Report 6145715-2 (Version None)
Quarter: 2009Q2

REPORT INFORMATION
  Report Type: 
  Country: None (occurrence: None)
  Receive Date: 20090406
  Receipt Date: 20090406
  Transmission Date: 20091009
  Serious: Yes (Disabling)
  Sender: FDA-Public Use
  Company Number: None

PATIENT
  Sex: Female
  Weight: 86.637 kg

DRUGS (4)
  1. METFORMIN HCL [Suspect]
     Indication: DIABETES MELLITUS
     Dosage: 500MG T0 1000MG QD BID PO
     Route: 048
     Dates: start: 20071201, end: 20080401
  2. GLYBURIDE [Concomitant]
  3. BYETTA [Concomitant]
  4. JANUVIA [Concomitant]

REACTIONS (1)
  - UNEVALUABLE EVENT [None]
